FAERS Safety Report 10758426 (Version 1)
Quarter: 2015Q1

REPORT INFORMATION
  Report Type: Spontaneous
  Country: US (occurrence: None)
  Receive Date: 20150202
  Receipt Date: 20150202
  Transmission Date: 20150721
  Serious: Yes (Other)
  Sender: FDA-Public Use
  Company Number: None

PATIENT
  Age: 31 Year
  Sex: Male
  Weight: 131.54 kg

DRUGS (1)
  1. AMOX TR-K CLV [Suspect]
     Active Substance: AMOXICILLIN\CLAVULANATE POTASSIUM
     Indication: SINUSITIS
     Dosage: 2 PILLS TAKEN BY MOUTH
     Route: 048
     Dates: start: 20150124, end: 20150129

REACTIONS (6)
  - Screaming [None]
  - Suicidal ideation [None]
  - Impaired work ability [None]
  - Poor quality sleep [None]
  - Neck pain [None]
  - Headache [None]

NARRATIVE: CASE EVENT DATE: 20150128
